FAERS Safety Report 14621888 (Version 3)
Quarter: 2018Q2

REPORT INFORMATION
  Report Type: Spontaneous
  Country: ES (occurrence: ES)
  Receive Date: 20180310
  Receipt Date: 20180515
  Transmission Date: 20180711
  Serious: Yes (Hospitalization, Other)
  Sender: FDA-Public Use
  Company Number: ES-AMGEN-ESPSP2018029957

PATIENT
  Age: 65 Year
  Sex: Male

DRUGS (7)
  1. DARBEPOETIN ALFA [Suspect]
     Active Substance: DARBEPOETIN ALFA
     Indication: ANAEMIA
     Dosage: UNK
     Route: 065
  2. DARBEPOETIN ALFA [Suspect]
     Active Substance: DARBEPOETIN ALFA
     Indication: TRANSPLANT DYSFUNCTION
  3. PREDNISONE. [Concomitant]
     Active Substance: PREDNISONE
     Indication: IMMUNOSUPPRESSION
     Dosage: UNK
  4. IRON [Concomitant]
     Active Substance: IRON
     Indication: ANAEMIA
  5. MYCOPHENOLATE [Concomitant]
     Active Substance: MYCOPHENOLIC ACID
     Indication: IMMUNOSUPPRESSION
     Dosage: UNK
  6. IRON [Concomitant]
     Active Substance: IRON
     Indication: TRANSPLANT DYSFUNCTION
  7. CYCLOSPORINE. [Concomitant]
     Active Substance: CYCLOSPORINE
     Indication: IMMUNOSUPPRESSION
     Dosage: UNK

REACTIONS (10)
  - Off label use [Unknown]
  - Blood lactate dehydrogenase increased [Unknown]
  - Haptoglobin increased [Unknown]
  - Cytomegalovirus colitis [Unknown]
  - Gastric ulcer [Unknown]
  - Asthenia [Unknown]
  - Pneumonia [Unknown]
  - Drug resistance [Unknown]
  - Urinary tract infection [Unknown]
  - Haemoglobin decreased [Unknown]
